FAERS Safety Report 22528984 (Version 2)
Quarter: 2023Q2

REPORT INFORMATION
  Report Type: Spontaneous
  Country: JP (occurrence: JP)
  Receive Date: 20230607
  Receipt Date: 20230626
  Transmission Date: 20230722
  Serious: Yes (Hospitalization, Other)
  Sender: FDA-Public Use
  Company Number: JP-002147023-NVSJ2023JP008863

PATIENT
  Age: 81 Year
  Sex: Male

DRUGS (4)
  1. TASIGNA [Suspect]
     Active Substance: NILOTINIB
     Indication: Chronic myeloid leukaemia
     Dosage: 150 MG
     Route: 048
     Dates: start: 202210
  2. TASIGNA [Suspect]
     Active Substance: NILOTINIB
     Dosage: 150 MG, QOD
     Route: 048
     Dates: end: 202302
  3. SCEMBLIX [Suspect]
     Active Substance: ASCIMINIB HYDROCHLORIDE
     Indication: Chronic myeloid leukaemia
     Dosage: 40 MG
     Route: 048
  4. SCEMBLIX [Suspect]
     Active Substance: ASCIMINIB HYDROCHLORIDE
     Dosage: 20 MG
     Route: 048

REACTIONS (5)
  - Decreased appetite [Recovered/Resolved]
  - Dehydration [Recovered/Resolved]
  - White blood cell count decreased [Recovering/Resolving]
  - Haemoglobin decreased [Recovering/Resolving]
  - Platelet count decreased [Recovering/Resolving]

NARRATIVE: CASE EVENT DATE: 20221001
